FAERS Safety Report 13896359 (Version 1)
Quarter: 2017Q3

REPORT INFORMATION
  Report Type: Spontaneous
  Country: US (occurrence: None)
  Receive Date: 20170814
  Receipt Date: 20170814
  Transmission Date: 20171127
  Serious: Yes (Life-Threatening, Hospitalization, Other)
  Sender: FDA-Public Use
  Company Number: None

PATIENT
  Age: 74 Year
  Sex: Female
  Weight: 60.33 kg

DRUGS (20)
  1. ZEBETA [Concomitant]
     Active Substance: BISOPROLOL FUMARATE
  2. MACROBID [Concomitant]
     Active Substance: NITROFURANTOIN\NITROFURANTOIN MONOHYDRATE
  3. ATIVAN [Concomitant]
     Active Substance: LORAZEPAM
  4. BABY ASPIRIN [Concomitant]
     Active Substance: ASPIRIN
  5. MULTIVITAMIN [Concomitant]
     Active Substance: VITAMINS
  6. MONOPRIL [Concomitant]
     Active Substance: FOSINOPRIL SODIUM
  7. AREDS 2 [Concomitant]
     Active Substance: MINERALS\VITAMINS
  8. TEKTURNA [Concomitant]
     Active Substance: ALISKIREN HEMIFUMARATE
  9. VITAMIN D [Concomitant]
     Active Substance: CHOLECALCIFEROL
  10. CETIRIZINE [Suspect]
     Active Substance: CETIRIZINE HYDROCHLORIDE
     Indication: MULTIPLE ALLERGIES
     Dosage: 1 PILL/DAY 1X AT BEDTIME BY MOUTH
     Route: 048
     Dates: start: 20170215, end: 20170408
  11. SELENIUM [Concomitant]
     Active Substance: SELENIUM
  12. FORTEO [Concomitant]
     Active Substance: TERIPARATIDE
  13. STOOL SOFTENER (DOCUSATE) [Concomitant]
     Active Substance: DOCUSATE
  14. CRESTOR [Concomitant]
     Active Substance: ROSUVASTATIN CALCIUM
  15. NITRO [Concomitant]
     Active Substance: NITROGLYCERIN
  16. PRESERVISION [Concomitant]
     Active Substance: MINERALS\VITAMINS
  17. MAGNESIUM [Concomitant]
     Active Substance: MAGNESIUM
  18. PLAVIX [Concomitant]
     Active Substance: CLOPIDOGREL BISULFATE
  19. VICODIN [Concomitant]
     Active Substance: ACETAMINOPHEN\HYDROCODONE BITARTRATE
  20. BENADRYL [Concomitant]
     Active Substance: DIPHENHYDRAMINE HYDROCHLORIDE

REACTIONS (1)
  - Cerebrovascular accident [None]

NARRATIVE: CASE EVENT DATE: 20170408
